FAERS Safety Report 9613134 (Version 3)
Quarter: 2013Q4

REPORT INFORMATION
  Report Type: Spontaneous
  Country: US (occurrence: None)
  Receive Date: 20130919
  Receipt Date: 20131219
  Transmission Date: 20140711
  Serious: Yes (Hospitalization)
  Sender: FDA-Public Use
  Company Number: GAM-253-13-US

PATIENT
  Age: 75 Year
  Sex: Female

DRUGS (15)
  1. OCTAGAM [Suspect]
     Indication: IMMUNODEFICIENCY COMMON VARIABLE
     Dosage: 60G (1X1/MONTH)
     Dates: start: 201209, end: 20130621
  2. CYCLOBENZAPRINE [Concomitant]
  3. HYDROXYCHLOROQUINE [Concomitant]
  4. DOXEPIN [Concomitant]
  5. LEVOTHYROXINE [Concomitant]
  6. ENALAPRIL [Concomitant]
  7. SIMVASTATIN [Concomitant]
  8. QUININE SULFATE [Concomitant]
  9. FLUCONAZOLE [Concomitant]
  10. FUROSEMIDE [Concomitant]
  11. VITAMIN A [Concomitant]
  12. VITAMIN B [Concomitant]
  13. VITAMIN C [Concomitant]
  14. LATANOPROST [Concomitant]
  15. WARFARIN [Concomitant]

REACTIONS (4)
  - Cellulitis [None]
  - Loss of consciousness [None]
  - Refusal of treatment by patient [None]
  - Memory impairment [None]
